FAERS Safety Report 25460931 (Version 2)
Quarter: 2025Q2

REPORT INFORMATION
  Report Type: Spontaneous
  Country: DE (occurrence: DE)
  Receive Date: 20250620
  Receipt Date: 20250630
  Transmission Date: 20250716
  Serious: Yes (Other)
  Sender: Unknown Manufacturer
  Company Number: DE-RECORDATI-2025004203

PATIENT

DRUGS (2)
  1. METOPROLOL SUCCINATE [Suspect]
     Active Substance: METOPROLOL SUCCINATE
     Indication: Hypertension
     Route: 048
  2. RAMIPRIL [Suspect]
     Active Substance: RAMIPRIL
     Indication: Hypertension
     Route: 048
     Dates: start: 2015

REACTIONS (5)
  - Hepatic fibrosis [Recovering/Resolving]
  - Thyroid cancer [Recovered/Resolved]
  - Arrhythmia [Unknown]
  - Overweight [Not Recovered/Not Resolved]
  - Hypertension [Recovered/Resolved]

NARRATIVE: CASE EVENT DATE: 20160101
